FAERS Safety Report 17700757 (Version 1)
Quarter: 2020Q2

REPORT INFORMATION
  Report Type: Report from Study
  Country: US (occurrence: US)
  Receive Date: 20200423
  Receipt Date: 20200423
  Transmission Date: 20200714
  Serious: Yes (Hospitalization)
  Sender: FDA-Public Use
  Company Number: US-ACTELION-A-US2020-204096

PATIENT
  Sex: Female
  Weight: 45.35 kg

DRUGS (2)
  1. VELETRI [Suspect]
     Active Substance: EPOPROSTENOL
     Indication: PULMONARY HYPERTENSION
     Dosage: 12.04 NG/KG, PER MIN
     Route: 042
  2. SILDENAFIL CITRATE. [Concomitant]
     Active Substance: SILDENAFIL CITRATE

REACTIONS (11)
  - Fatigue [Unknown]
  - Pain in jaw [Unknown]
  - Dyspnoea [Unknown]
  - Asthenia [Unknown]
  - Anxiety [Unknown]
  - Gait disturbance [Unknown]
  - Hospitalisation [Unknown]
  - Weight decreased [Unknown]
  - Headache [Unknown]
  - Oxygen consumption increased [Unknown]
  - Nervousness [Unknown]
